FAERS Safety Report 7921103-0 (Version None)
Quarter: 2011Q4

REPORT INFORMATION
  Report Type: 
  Country: None (occurrence: None)
  Receive Date: 20111117
  Receipt Date: 20111107
  Transmission Date: 20120403
  Serious: Yes (Hospitalization)
  Sender: FDA-Public Use
  Company Number: US-BAYER-2011-109550

PATIENT
  Age: 29 Year
  Sex: Female
  Weight: 72.562 kg

DRUGS (19)
  1. PREVACID [Concomitant]
     Dosage: 30 MG, UNK
     Dates: start: 20090921, end: 20091118
  2. DROSPIRENONE AND ETHINYL ESTRADIOL [Suspect]
     Indication: CONTRACEPTION
     Dosage: UNK
     Dates: start: 20080701, end: 20100101
  3. DROSPIRENONE AND ETHINYL ESTRADIOL [Suspect]
     Indication: ACNE
  4. YAZ [Suspect]
     Indication: ACNE
  5. XANAX [Concomitant]
     Dosage: 0.5 MG, UNK
     Dates: start: 20100120
  6. YASMIN [Suspect]
     Indication: ACNE
     Dosage: UNK
     Dates: start: 20060101, end: 20060601
  7. YASMIN [Suspect]
     Indication: CONTRACEPTION
     Dosage: UNK
     Dates: start: 20040801, end: 20050501
  8. DROSPIRENONE AND ETHINYL ESTRADIOL [Suspect]
     Indication: PREMENSTRUAL SYNDROME
  9. ZOLOFT [Concomitant]
     Indication: AUTONOMIC NERVOUS SYSTEM IMBALANCE
     Dosage: 25 MG, QD
     Dates: start: 20090101
  10. ZOLOFT [Concomitant]
     Indication: ANXIETY
  11. FLUCONAZOLE [Concomitant]
     Dosage: 150 MG, UNK
     Dates: start: 20091218
  12. RANITIDINE [Concomitant]
     Dosage: 150 MG, UNK
     Dates: start: 20090921, end: 20091117
  13. YASMIN [Suspect]
     Indication: PREMENSTRUAL SYNDROME
     Dosage: UNK
     Dates: start: 20070601, end: 20080701
  14. YAZ [Suspect]
     Indication: CONTRACEPTION
     Dosage: UNK
     Dates: start: 20060601, end: 20070301
  15. FLORINEF [Concomitant]
     Indication: BLOOD PRESSURE INCREASED
     Dosage: 0.1 MG, QD
     Dates: start: 20070101
  16. POTASSIUM CHLORIDE [Concomitant]
     Indication: MINERAL SUPPLEMENTATION
     Dosage: UNK
     Dates: start: 20090101
  17. YAZ [Suspect]
     Indication: PREMENSTRUAL SYNDROME
  18. INDERAL [Concomitant]
     Indication: HEART RATE IRREGULAR
     Dosage: 20 MG, TID
     Dates: start: 20090101
  19. CLONIDINE [Concomitant]
     Dosage: 0.1 MG, UNK
     Dates: start: 20100115

REACTIONS (6)
  - MENTAL DISORDER [None]
  - INJURY [None]
  - PAIN [None]
  - EMOTIONAL DISTRESS [None]
  - PULMONARY EMBOLISM [None]
  - ANXIETY [None]
